FAERS Safety Report 6023596-5 (Version None)
Quarter: 2008Q4

REPORT INFORMATION
  Report Type: 
  Country: None (occurrence: None)
  Receive Date: 20081226
  Receipt Date: 20081226
  Transmission Date: 20090506
  Serious: Yes (Other)
  Sender: FDA-Public Use
  Company Number: None

PATIENT
  Age: 3 Year
  Sex: Male
  Weight: 16.3295 kg

DRUGS (1)
  1. CEFDINIR [Suspect]
     Indication: PHARYNGITIS STREPTOCOCCAL
     Dosage: 1 TEASPOON ONCE DAILY PO
     Route: 048
     Dates: start: 20081222, end: 20081222

REACTIONS (2)
  - DIARRHOEA [None]
  - RASH PAPULAR [None]
